FAERS Safety Report 15311179 (Version 3)
Quarter: 2018Q3

REPORT INFORMATION
  Report Type: Report from Study
  Country: FI (occurrence: FI)
  Receive Date: 20180823
  Receipt Date: 20180903
  Transmission Date: 20181010
  Serious: Yes (Hospitalization)
  Sender: FDA-Public Use
  Company Number: FI-SHIRE-FI201819038

PATIENT

DRUGS (6)
  1. BETOLVEX [Concomitant]
     Active Substance: CYANOCOBALAMIN
     Indication: SHORT-BOWEL SYNDROME
  2. DEVISOL [Concomitant]
     Indication: SHORT-BOWEL SYNDROME
  3. TEDUGLUTIDE [Suspect]
     Active Substance: TEDUGLUTIDE
     Indication: SHORT-BOWEL SYNDROME
     Dosage: UNK UNK, UNKNOWN
     Route: 058
     Dates: start: 20171024, end: 20180417
  4. MULTIVITAMIN [Concomitant]
     Active Substance: VITAMINS
     Indication: SHORT-BOWEL SYNDROME
  5. LOSEC [Concomitant]
     Active Substance: OMEPRAZOLE
     Indication: SHORT-BOWEL SYNDROME
  6. LOPEX [Concomitant]
     Indication: SHORT-BOWEL SYNDROME

REACTIONS (1)
  - Acidosis [Recovered/Resolved]

NARRATIVE: CASE EVENT DATE: 20180507
